FAERS Safety Report 8874200 (Version 2)
Quarter: 2012Q4

REPORT INFORMATION
  Report Type: Report from Study
  Country: US (occurrence: US)
  Receive Date: 20121031
  Receipt Date: 20121213
  Transmission Date: 20130627
  Serious: Yes (Hospitalization)
  Sender: FDA-Public Use
  Company Number: US-ACTELION-A-US2012-73602

PATIENT
  Age: 59 Year
  Sex: Female

DRUGS (2)
  1. VENTAVIS [Suspect]
     Indication: PULMONARY ARTERIAL HYPERTENSION
     Dosage: UNK
     Route: 055
  2. COUMADIN [Concomitant]

REACTIONS (3)
  - Gastroenteritis viral [Unknown]
  - Pyrexia [Unknown]
  - Dyspnoea [Unknown]
